FAERS Safety Report 7420535-7 (Version None)
Quarter: 2011Q2

REPORT INFORMATION
  Report Type: 
  Country: None (occurrence: None)
  Receive Date: 20110418
  Receipt Date: 20110413
  Transmission Date: 20111010
  Serious: Yes (Death)
  Sender: FDA-Public Use
  Company Number: AU-ASTRAZENECA-2011SE21201

PATIENT
  Age: 93 Day
  Sex: Male

DRUGS (4)
  1. PRILOSEC [Suspect]
     Indication: ABDOMINAL PAIN
     Route: 048
     Dates: start: 20100111
  2. BRAUER COLIC RELIEF [Concomitant]
  3. INFACOL [Concomitant]
  4. PANADOL [Concomitant]

REACTIONS (1)
  - DEATH [None]
